FAERS Safety Report 9772861 (Version 1)
Quarter: 2013Q4

REPORT INFORMATION
  Report Type: Spontaneous
  Country: NL (occurrence: NL)
  Receive Date: 20131219
  Receipt Date: 20131219
  Transmission Date: 20140711
  Serious: Yes (Congenital Anomaly)
  Sender: FDA-Public Use
  Company Number: NL-PFIZER INC-2013362128

PATIENT
  Sex: Male

DRUGS (2)
  1. DOSTINEX [Suspect]
     Indication: HYPERPROLACTINAEMIA
     Dosage: 0.5 MG, UNK
     Route: 064
     Dates: end: 20110620
  2. FOLIC ACID [Concomitant]
     Dosage: UNK
     Route: 064

REACTIONS (2)
  - Anencephaly [Not Recovered/Not Resolved]
  - Maternal exposure during pregnancy [Unknown]
